FAERS Safety Report 6237594-X (Version None)
Quarter: 2009Q2

REPORT INFORMATION
  Report Type: 
  Country: None (occurrence: None)
  Receive Date: 20090619
  Receipt Date: 20090612
  Transmission Date: 20091009
  Serious: Yes (Hospitalization)
  Sender: FDA-Public Use
  Company Number: JP-MERCK-0906USA01817

PATIENT
  Age: 89 Year
  Sex: Female
  Weight: 42 kg

DRUGS (14)
  1. PEPCID RPD [Suspect]
     Indication: GASTRITIS
     Route: 048
     Dates: start: 20090505, end: 20090515
  2. HEPARIN [Suspect]
     Indication: ATRIAL FIBRILLATION
     Route: 042
     Dates: start: 20090428, end: 20090502
  3. HEPARIN [Suspect]
     Route: 042
     Dates: start: 20090503, end: 20090506
  4. HEPARIN [Suspect]
     Route: 042
     Dates: start: 20090507, end: 20090511
  5. DIGOSIN [Concomitant]
     Route: 065
     Dates: end: 20090508
  6. ALDACTONE [Concomitant]
     Route: 065
  7. LASIX [Concomitant]
     Route: 065
  8. RENIVACE [Concomitant]
     Route: 065
  9. WARFARIN [Concomitant]
     Route: 065
  10. SUCRALFATE [Concomitant]
     Route: 065
     Dates: end: 20090604
  11. LASIX [Concomitant]
     Route: 051
     Dates: start: 20090427, end: 20090514
  12. CEFOCEF [Concomitant]
     Route: 065
     Dates: start: 20090428, end: 20090509
  13. AMINOFLUID [Concomitant]
     Route: 051
     Dates: start: 20090427, end: 20090519
  14. TRIFLUID [Concomitant]
     Route: 051
     Dates: start: 20090427, end: 20090519

REACTIONS (1)
  - PROTHROMBIN TIME PROLONGED [None]
